FAERS Safety Report 25938806 (Version 2)
Quarter: 2025Q4

REPORT INFORMATION
  Report Type: Report from Study
  Country: US (occurrence: US)
  Receive Date: 20251019
  Receipt Date: 20251021
  Transmission Date: 20260118
  Serious: No
  Sender: BRISTOL-MYERS SQUIBB COMPANY
  Company Number: US-BRISTOL-MYERS SQUIBB COMPANY-2025-142477

PATIENT
  Age: 83 Year
  Sex: Male
  Weight: 77.56 kg

DRUGS (5)
  1. ELIQUIS [Suspect]
     Active Substance: APIXABAN
     Indication: Atrial fibrillation
     Dates: start: 202507
  2. ELIQUIS [Suspect]
     Active Substance: APIXABAN
  3. LOSARTAN [Suspect]
     Active Substance: LOSARTAN
     Indication: Blood pressure increased
  4. DILTIAZEM [Suspect]
     Active Substance: DILTIAZEM
     Indication: Cardiac disorder
  5. AVODART [Concomitant]
     Active Substance: DUTASTERIDE
     Indication: Prostatic disorder

REACTIONS (1)
  - Hair growth abnormal [Unknown]

NARRATIVE: CASE EVENT DATE: 20250701
